FAERS Safety Report 9166765 (Version 1)
Quarter: 2012Q4

REPORT INFORMATION
  Report Type: 
  Country: US (occurrence: US)
  Receive Date: 20121121
  Receipt Date: 20121121
  Transmission Date: 20130627
  Serious: Yes (Hospitalization)
  Sender: FDA-Public Use
  Company Number: US-BIOMARINP-003218

PATIENT
  Sex: Male

DRUGS (1)
  1. NAGLAZYME [Suspect]
     Indication: METABOLIC DISORDER
     Route: 041
     Dates: start: 20070423

REACTIONS (1)
  - Pneumonia [Not Recovered/Not Resolved]
